FAERS Safety Report 5445778-3 (Version None)
Quarter: 2007Q3

REPORT INFORMATION
  Report Type: 
  Country: None (occurrence: None)
  Receive Date: 20070904
  Receipt Date: 20070817
  Transmission Date: 20080115
  Serious: Yes (Other)
  Sender: FDA-Public Use
  Company Number: 2007RR-09391

PATIENT
  Age: 29 Year
  Sex: Female

DRUGS (4)
  1. FLUCONAZOLE [Suspect]
     Indication: BODY TINEA
     Dosage: 150 MG, QD
  2. CARBAMAZEPINE [Suspect]
     Dosage: 1600 MG, QD
  3. BARBEXACLONE [Suspect]
     Dosage: 100 MG, QD
  4. LAMOTRIGINE [Concomitant]

REACTIONS (17)
  - CEREBELLAR SYNDROME [None]
  - DIPLOPIA [None]
  - DIZZINESS [None]
  - DRUG INTERACTION [None]
  - DRUG LEVEL INCREASED [None]
  - DRUG TOXICITY [None]
  - EYE MOVEMENT DISORDER [None]
  - GAIT DISTURBANCE [None]
  - GAMMA-GLUTAMYLTRANSFERASE INCREASED [None]
  - NAUSEA [None]
  - NEUROLOGICAL EXAMINATION ABNORMAL [None]
  - NEUROLOGICAL SYMPTOM [None]
  - NYSTAGMUS [None]
  - OSCILLOPSIA [None]
  - VISION BLURRED [None]
  - VOMITING [None]
  - WHITE BLOOD CELL COUNT DECREASED [None]
